FAERS Safety Report 23069133 (Version 4)
Quarter: 2024Q1

REPORT INFORMATION
  Report Type: Other
  Country: RO (occurrence: None)
  Receive Date: 20231016
  Receipt Date: 20240318
  Transmission Date: 20240410
  Serious: Yes (Hospitalization)
  Sender: FDA-Public Use
  Company Number: RO-ROCHE-3324345

PATIENT
  Age: 75 Year
  Sex: Male
  Weight: 85 kg

DRUGS (8)
  1. ATEZOLIZUMAB [Suspect]
     Active Substance: ATEZOLIZUMAB
     Indication: Hepatocellular carcinoma
     Dosage: ON 06/JUN/2023, START AND END DATE OF MOST RECENT DOSE 1200 MG OF ATEZOLIZUMAB PRIOR TO AE AND SAE?O
     Route: 041
     Dates: start: 20230330
  2. BEVACIZUMAB [Suspect]
     Active Substance: BEVACIZUMAB
     Indication: Hepatocellular carcinoma
     Route: 065
     Dates: start: 20230330
  3. SILIMARINA [Concomitant]
     Dates: start: 20230331
  4. PROPRANOLOL [Concomitant]
     Active Substance: PROPRANOLOL HYDROCHLORIDE
  5. URSODIOL [Concomitant]
     Active Substance: URSODIOL
  6. SILIBININ [Concomitant]
     Active Substance: SILIBININ
     Dates: start: 20230331
  7. URSODIOL [Concomitant]
     Active Substance: URSODIOL
  8. FERROUS SULFATE [Concomitant]
     Active Substance: FERROUS SULFATE
     Dates: start: 20230330

REACTIONS (5)
  - Haemorrhoidal haemorrhage [Recovered/Resolved]
  - Anaemia [Recovered/Resolved]
  - Anaemia [Recovered/Resolved]
  - Ascites [Not Recovered/Not Resolved]
  - Bilirubin conjugated increased [Not Recovered/Not Resolved]

NARRATIVE: CASE EVENT DATE: 20230331
